FAERS Safety Report 8113367-8 (Version None)
Quarter: 2012Q1

REPORT INFORMATION
  Report Type: 
  Country: None (occurrence: None)
  Receive Date: 20120203
  Receipt Date: 20120131
  Transmission Date: 20120608
  Serious: Yes (Hospitalization, Other)
  Sender: FDA-Public Use
  Company Number: PHHY2012IN008503

PATIENT
  Age: 72 Year
  Sex: Female

DRUGS (1)
  1. ZOLEDRONOC ACID [Suspect]
     Dosage: 5 MG, UNK
     Route: 042

REACTIONS (6)
  - JOINT SWELLING [None]
  - HUMERUS FRACTURE [None]
  - MOVEMENT DISORDER [None]
  - PAIN IN EXTREMITY [None]
  - FALL [None]
  - ARTHRALGIA [None]
